FAERS Safety Report 4330290-5 (Version None)
Quarter: 2004Q2

REPORT INFORMATION
  Report Type: 
  Country: None (occurrence: None)
  Receive Date: 20040402
  Receipt Date: 20040216
  Transmission Date: 20050107
  Serious: Yes (Other)
  Sender: FDA-Public Use
  Company Number: PHEH2004US02017

PATIENT
  Age: 59 Year
  Sex: Female
  Weight: 99 kg

DRUGS (14)
  1. DIOVAN [Suspect]
     Indication: HYPERTENSION
     Dosage: 160 MG, QD
     Route: 048
     Dates: start: 20010727, end: 20011101
  2. DIOVAN [Suspect]
     Dosage: 320 MG, QD
     Route: 048
     Dates: start: 20011101, end: 20040127
  3. GLUCOPHAGE [Concomitant]
     Indication: DIABETES MELLITUS
     Dates: start: 20010419
  4. NORVASC [Concomitant]
     Indication: HYPERTENSION
     Dosage: 5 MG, BID
     Dates: start: 20010101
  5. LIPITOR [Concomitant]
     Dates: start: 20031222, end: 20040205
  6. TOPROL-XL [Concomitant]
     Indication: HYPERTENSION
  7. IBUPROFEN [Concomitant]
  8. TUMS [Concomitant]
  9. HYDROCHLOROTHIAZIDE [Concomitant]
     Dates: start: 20031222, end: 20040205
  10. AVANDIA [Concomitant]
     Dates: start: 20040108
  11. AMARYL [Concomitant]
     Indication: DIABETES MELLITUS
  12. ASPIRIN [Concomitant]
  13. TORSEMIDE [Concomitant]
     Indication: FLUID RETENTION
     Dosage: 100 MG, 0.5 TAB DAILY
     Dates: start: 20040108
  14. POTASSIUM SUPPLEMENTS [Concomitant]

REACTIONS (6)
  - ASPIRATION BONE MARROW [None]
  - BLOOD GLUCOSE INCREASED [None]
  - NEUTROPENIA [None]
  - PLATELET COUNT DECREASED [None]
  - THROMBOCYTOPENIA [None]
  - WHITE BLOOD CELL COUNT DECREASED [None]
